FAERS Safety Report 6343041-X (Version None)
Quarter: 2009Q3

REPORT INFORMATION
  Report Type: 
  Country: None (occurrence: None)
  Receive Date: 20090908
  Receipt Date: 20090826
  Transmission Date: 20100115
  Serious: Yes (Life-Threatening, Other)
  Sender: FDA-Public Use
  Company Number: JP-ROCHE-650136

PATIENT
  Sex: Female
  Weight: 23 kg

DRUGS (5)
  1. TAMIFLU [Suspect]
     Dosage: DRUG REPORTED AS TAMIFLU DRUG SYRUP 3%
     Route: 048
     Dates: start: 20090724, end: 20090724
  2. HOKUNALIN [Suspect]
     Indication: DRUG USE FOR UNKNOWN INDICATION
     Route: 062
  3. FLUTIDE [Concomitant]
     Route: 055
     Dates: start: 20090724, end: 20090727
  4. MUCODYNE [Concomitant]
     Route: 048
     Dates: start: 20090724, end: 20090727
  5. ZESULAN [Concomitant]
     Route: 048
     Dates: start: 20090724, end: 20090726

REACTIONS (2)
  - AGITATION [None]
  - INSOMNIA [None]
